FAERS Safety Report 7407671-6 (Version None)
Quarter: 2011Q2

REPORT INFORMATION
  Report Type: 
  Country: None (occurrence: None)
  Receive Date: 20110412
  Receipt Date: 20101130
  Transmission Date: 20111010
  Serious: Yes (Life-Threatening, Other)
  Sender: FDA-Public Use
  Company Number: US-BAYER-2010-002558

PATIENT
  Sex: Male

DRUGS (1)
  1. AVELOX [Suspect]

REACTIONS (3)
  - GENERALISED ERYTHEMA [None]
  - DYSPNOEA [None]
  - APHAGIA [None]
